FAERS Safety Report 7381951-5 (Version None)
Quarter: 2011Q1

REPORT INFORMATION
  Report Type: 
  Country: None (occurrence: None)
  Receive Date: 20110329
  Receipt Date: 20110321
  Transmission Date: 20110831
  Serious: Yes (Hospitalization, Other)
  Sender: FDA-Public Use
  Company Number: NL-MEDIMMUNE-MEDI-0012085

PATIENT
  Sex: Male
  Weight: 5.5 kg

DRUGS (4)
  1. SYNAGIS [Suspect]
     Route: 030
     Dates: start: 20101001, end: 20101028
  2. SPIRONOLACTONE [Concomitant]
     Indication: HEART DISEASE CONGENITAL
     Dosage: 1 UNIT
     Route: 048
     Dates: start: 20100912, end: 20101102
  3. SYNAGIS [Suspect]
     Route: 030
     Dates: start: 20101222
  4. FUROSEMIDE [Concomitant]
     Indication: HEART DISEASE CONGENITAL
     Dosage: 2 UNITS
     Route: 048
     Dates: start: 20100912, end: 20101102

REACTIONS (4)
  - DIARRHOEA [None]
  - OXYGEN SATURATION DECREASED [None]
  - VOMITING [None]
  - RHINOVIRUS INFECTION [None]
